FAERS Safety Report 7508310-6 (Version None)
Quarter: 2011Q2

REPORT INFORMATION
  Report Type: 
  Country: None (occurrence: None)
  Receive Date: 20110527
  Receipt Date: 20110525
  Transmission Date: 20111010
  Serious: Yes (Hospitalization)
  Sender: FDA-Public Use
  Company Number: US-TYCO HEALTHCARE/MALLINCKRODT-T201101115

PATIENT
  Age: 65 Year
  Sex: Female
  Weight: 105.22 kg

DRUGS (15)
  1. ZYPREXA [Concomitant]
  2. MELOXICAM [Concomitant]
  3. NORCO [Concomitant]
  4. FLECTOR                            /00372302/ [Concomitant]
  5. ZANAFLEX [Concomitant]
  6. METFORMIN HCL [Concomitant]
  7. SINEMET [Concomitant]
  8. NEURONTIN [Concomitant]
  9. FENTANYL-100 [Suspect]
     Indication: PAIN
     Dosage: 100 UG/HR Q48 HOURS
     Route: 062
     Dates: start: 20110505
  10. SYNTHROID [Concomitant]
  11. LIDODERM [Concomitant]
  12. KLONOPIN [Concomitant]
  13. HYZAAR                             /01284801/ [Concomitant]
  14. MULTI-VITAMINS [Concomitant]
  15. SYMBYAX [Concomitant]

REACTIONS (3)
  - INCOHERENT [None]
  - FALL [None]
  - ANKLE FRACTURE [None]
